FAERS Safety Report 8434309-1 (Version None)
Quarter: 2012Q2

REPORT INFORMATION
  Report Type: 
  Country: None (occurrence: None)
  Receive Date: 20120613
  Receipt Date: 20120606
  Transmission Date: 20120825
  Serious: Yes (Other)
  Sender: FDA-Public Use
  Company Number: MY-ALLERGAN-1206243US

PATIENT
  Age: 3 Month
  Sex: Male

DRUGS (10)
  1. PRED FORTE [Suspect]
  2. FOLIC ACID [Concomitant]
  3. NEVANAC [Suspect]
     Indication: RETINOPATHY
     Dosage: 3 GTT, 0.1% QD
     Route: 047
     Dates: start: 20110107, end: 20110110
  4. FERRIC AMMONIUM CITRATE [Concomitant]
  5. GENTAMICIN/BECLOMETASONE [Concomitant]
     Dosage: UNK
     Route: 047
     Dates: start: 20100612
  6. OMEPRAZOLE [Concomitant]
     Dosage: 1 ML, UNK
  7. PRED FORTE [Suspect]
     Indication: RETINOPATHY
     Dosage: 4 DROPS DAILY
     Route: 047
     Dates: start: 20110107, end: 20110110
  8. PRED FORTE [Suspect]
  9. METOCLOPRAMIDE [Concomitant]
     Dosage: 0.6 ML, QD
     Route: 048
  10. MULTIVITAMIN                       /00097801/ [Concomitant]

REACTIONS (1)
  - CORNEAL OPACITY [None]
